FAERS Safety Report 25555434 (Version 1)
Quarter: 2025Q3

REPORT INFORMATION
  Report Type: Spontaneous
  Country: US (occurrence: None)
  Receive Date: 20250715
  Receipt Date: 20250715
  Transmission Date: 20251020
  Serious: No
  Sender: FDA-CTU
  Company Number: None

PATIENT
  Age: 75 Year
  Sex: Male
  Weight: 81.7 kg

DRUGS (4)
  1. DARATUMUMAB\HYALURONIDASE-FIHJ [Suspect]
     Active Substance: DARATUMUMAB\HYALURONIDASE-FIHJ
     Dates: start: 20230810, end: 20250416
  2. DEXAMETHASONE [Suspect]
     Active Substance: DEXAMETHASONE
     Dates: end: 20250116
  3. LENALIDOMIDE [Suspect]
     Active Substance: LENALIDOMIDE
     Dates: end: 20250422
  4. FUROSEMIDE [Suspect]
     Active Substance: FUROSEMIDE

REACTIONS (9)
  - Dizziness [None]
  - Loss of consciousness [None]
  - Fall [None]
  - Limb injury [None]
  - Contusion [None]
  - Thermal burn [None]
  - Limb injury [None]
  - Blood pressure diastolic decreased [None]
  - Syncope [None]

NARRATIVE: CASE EVENT DATE: 20250424
